FAERS Safety Report 15907785 (Version 2)
Quarter: 2019Q1

REPORT INFORMATION
  Report Type: Spontaneous
  Country: CN (occurrence: CN)
  Receive Date: 20190204
  Receipt Date: 20190219
  Transmission Date: 20190417
  Serious: Yes (Disabling)
  Sender: FDA-Public Use
  Company Number: CN-BAUSCH-BL-2019-002891

PATIENT
  Sex: Male

DRUGS (1)
  1. TIMOLOL MALEATE EYE DROPS [Suspect]
     Active Substance: TIMOLOL MALEATE
     Indication: GLAUCOMA
     Dosage: 1 DROP PER HOUR FROM 6:00 AM TO 18:00 PM FOR BOTH EYES
     Route: 047
     Dates: start: 20190125, end: 2019

REACTIONS (4)
  - Dizziness [Recovered/Resolved]
  - Vomiting [Recovered/Resolved]
  - Overdose [Recovered/Resolved]
  - Gait inability [Recovered/Resolved]

NARRATIVE: CASE EVENT DATE: 20190125
